FAERS Safety Report 20841117 (Version 1)
Quarter: 2022Q2

REPORT INFORMATION
  Report Type: Spontaneous
  Country: NO (occurrence: NO)
  Receive Date: 20220517
  Receipt Date: 20220517
  Transmission Date: 20220721
  Serious: Yes (Life-Threatening, Hospitalization, Other)
  Sender: FDA-Public Use
  Company Number: None

PATIENT
  Age: 48 Year
  Sex: Male
  Weight: 107 kg

DRUGS (4)
  1. REVLIMID [Suspect]
     Active Substance: LENALIDOMIDE
     Indication: Plasma cell myeloma
     Dosage: TAKEN IN SEQUENCES OF 4X3 WEEKS
     Route: 048
     Dates: start: 202203
  2. DEXAMETHASONE [Suspect]
     Active Substance: DEXAMETHASONE
     Indication: Plasma cell myeloma
     Dosage: 20 MG TAKEN IN SEQUENCES OF 4X3
     Route: 065
  3. BORTEZOMIB [Suspect]
     Active Substance: BORTEZOMIB
     Indication: Plasma cell myeloma
     Dosage: 120 MG TAKEN TOGETHER WITH OXY-MEDICATIONS
     Route: 065
     Dates: start: 20220105
  4. FUROSEMIDE [Suspect]
     Active Substance: FUROSEMIDE
     Indication: Product used for unknown indication
     Route: 048

REACTIONS (14)
  - Visual impairment [Recovering/Resolving]
  - Heart rate increased [Recovering/Resolving]
  - Pain in extremity [Unknown]
  - Vision blurred [Recovering/Resolving]
  - Stress [Recovering/Resolving]
  - Supraventricular tachycardia [Recovering/Resolving]
  - Oedema [Unknown]
  - Pulse abnormal [Recovered/Resolved]
  - Dizziness [Recovering/Resolving]
  - Dyspnoea [Unknown]
  - Chest pain [Recovering/Resolving]
  - Insomnia [Recovering/Resolving]
  - Tunnel vision [Recovering/Resolving]
  - Off label use [Unknown]

NARRATIVE: CASE EVENT DATE: 20220326
